FAERS Safety Report 22295159 (Version 1)
Quarter: 2023Q2

REPORT INFORMATION
  Report Type: Spontaneous
  Country: US (occurrence: None)
  Receive Date: 20230506
  Receipt Date: 20230506
  Transmission Date: 20230722
  Serious: Yes (Life-Threatening)
  Sender: FDA-Public Use
  Company Number: None

PATIENT
  Age: 73 Year
  Sex: Female
  Weight: 62.1 kg

DRUGS (15)
  1. PREGABALIN [Suspect]
     Active Substance: PREGABALIN
     Indication: Neuralgia
     Dosage: 1 TABLET 3 TIMES A DAY ORAL
     Route: 048
     Dates: start: 20230505, end: 20230506
  2. SYNTHROID [Concomitant]
     Active Substance: LEVOTHYROXINE SODIUM
  3. BELSOMRA [Concomitant]
     Active Substance: SUVOREXANT
  4. OMEPRAZOLE [Concomitant]
     Active Substance: OMEPRAZOLE
  5. ROSUVASTATIN [Concomitant]
     Active Substance: ROSUVASTATIN
  6. ASPIRIN EC [Concomitant]
  7. TRAMADOL HCL [Concomitant]
  8. AAREDS2 [Concomitant]
  9. PROBIOTICS NOS [Concomitant]
     Active Substance: PROBIOTICS NOS
  10. BILLBERRY [Concomitant]
  11. CIDER VINEGAR [Concomitant]
  12. LUTEIN [Concomitant]
     Active Substance: LUTEIN
  13. COSTCO [Concomitant]
  14. VITAMINS [Concomitant]
     Active Substance: VITAMINS
  15. EYE INSTITUTE DRY EYE VITAMIN [Concomitant]

REACTIONS (7)
  - Dyskinesia [None]
  - Muscle twitching [None]
  - Mental impairment [None]
  - Speech disorder [None]
  - Sensory loss [None]
  - Hypopnoea [None]
  - Anxiety [None]
